FAERS Safety Report 6200610-5 (Version None)
Quarter: 2009Q2

REPORT INFORMATION
  Report Type: 
  Country: None (occurrence: None)
  Receive Date: 20090522
  Receipt Date: 20090513
  Transmission Date: 20091009
  Serious: Yes (Death, Other)
  Sender: FDA-Public Use
  Company Number: ES-AMGEN-UK213379

PATIENT
  Age: 60 Year
  Sex: Male

DRUGS (1)
  1. ARANESP [Suspect]
     Indication: ANAEMIA
     Route: 058

REACTIONS (4)
  - COLON CANCER [None]
  - HAEMOGLOBIN DECREASED [None]
  - PEMPHIGOID [None]
  - POST PROCEDURAL COMPLICATION [None]
